FAERS Safety Report 12530642 (Version 1)
Quarter: 2016Q3

REPORT INFORMATION
  Report Type: Spontaneous
  Country: US (occurrence: None)
  Receive Date: 20160705
  Receipt Date: 20160705
  Transmission Date: 20161109
  Serious: Yes (Hospitalization)
  Sender: FDA-Public Use
  Company Number: None

PATIENT
  Age: 50 Year
  Sex: Male
  Weight: 113 kg

DRUGS (4)
  1. DAUNORUBICIN [Suspect]
     Active Substance: DAUNORUBICIN
     Dates: end: 20160616
  2. DEXAMETHASONE. [Suspect]
     Active Substance: DEXAMETHASONE
     Dates: end: 20160616
  3. VINCRISTINE SULFATE. [Suspect]
     Active Substance: VINCRISTINE SULFATE
     Dates: end: 20160616
  4. CYTARABINE. [Suspect]
     Active Substance: CYTARABINE
     Dates: end: 20160609

REACTIONS (5)
  - Agitation [None]
  - Thinking abnormal [None]
  - Delirium [None]
  - Aggression [None]
  - Disorientation [None]

NARRATIVE: CASE EVENT DATE: 20160619
